FAERS Safety Report 10891113 (Version 3)
Quarter: 2015Q2

REPORT INFORMATION
  Report Type: Spontaneous
  Country: JP (occurrence: JP)
  Receive Date: 20150305
  Receipt Date: 20150402
  Transmission Date: 20150821
  Serious: Yes (Hospitalization)
  Sender: FDA-Public Use
  Company Number: JP-SA-2015SA027067

PATIENT
  Sex: Female
  Weight: 51.4 kg

DRUGS (10)
  1. TAKEPRON [Concomitant]
     Active Substance: LANSOPRAZOLE
  2. TAXOTERE [Suspect]
     Active Substance: DOCETAXEL
     Indication: OVARIAN CANCER
     Route: 041
     Dates: start: 20141229
  3. GEMZAR [Suspect]
     Active Substance: GEMCITABINE HYDROCHLORIDE
     Indication: OVARIAN CANCER
     Dosage: 600 OR 1200 MG , TWICE PER 3 WEEKS
     Route: 041
     Dates: start: 20141222
  4. BAYASPIRIN [Concomitant]
     Active Substance: ASPIRIN
  5. GLYCYRON [Concomitant]
     Active Substance: AMMONIUM GLYCYRRHIZATE\GLYCINE\METHIONINE
  6. OXINORM [Concomitant]
     Active Substance: OXYCODONE HYDROCHLORIDE
  7. NASEA [Concomitant]
     Active Substance: RAMOSETRON HYDROCHLORIDE
  8. NAIXAN [Concomitant]
     Active Substance: NAPROXEN SODIUM
  9. OXYCONTIN [Concomitant]
     Active Substance: OXYCODONE HYDROCHLORIDE
  10. DECADRON [Concomitant]
     Active Substance: DEXAMETHASONE

REACTIONS (5)
  - Dermatomyositis [Recovering/Resolving]
  - Interstitial lung disease [Recovered/Resolved]
  - Dyspnoea [Recovered/Resolved]
  - Erythema [Recovering/Resolving]
  - Rash [Recovering/Resolving]

NARRATIVE: CASE EVENT DATE: 20150216
